FAERS Safety Report 9543878 (Version 1)
Quarter: 2013Q3

REPORT INFORMATION
  Report Type: Spontaneous
  Country: JP (occurrence: JP)
  Receive Date: 20130923
  Receipt Date: 20130923
  Transmission Date: 20140515
  Serious: Yes (Other)
  Sender: FDA-Public Use
  Company Number: JP-GLAXOSMITHKLINE-B0924253A

PATIENT
  Sex: 0

DRUGS (2)
  1. HEPSERA 10 [Suspect]
     Indication: CHRONIC HEPATITIS B
     Route: 048
  2. ZEFIX 100 [Suspect]
     Indication: CHRONIC HEPATITIS B
     Route: 048

REACTIONS (3)
  - Fanconi syndrome [Unknown]
  - Blood phosphorus decreased [Unknown]
  - Drug resistance [Unknown]
